FAERS Safety Report 6779568-6 (Version None)
Quarter: 2010Q2

REPORT INFORMATION
  Report Type: 
  Country: None (occurrence: None)
  Receive Date: 20100618
  Receipt Date: 20100615
  Transmission Date: 20101027
  Serious: Yes (Other)
  Sender: FDA-Public Use
  Company Number: A0850520A

PATIENT
  Age: 69 Year
  Sex: Male

DRUGS (1)
  1. VOTRIENT [Suspect]
     Indication: RENAL CANCER METASTATIC
     Dates: start: 20100201

REACTIONS (4)
  - DEAFNESS [None]
  - HYPERACUSIS [None]
  - SENSORY DISTURBANCE [None]
  - TINNITUS [None]
